FAERS Safety Report 21948718 (Version 2)
Quarter: 2023Q1

REPORT INFORMATION
  Report Type: Spontaneous
  Country: US (occurrence: None)
  Receive Date: 20230203
  Receipt Date: 20230214
  Transmission Date: 20230418
  Serious: Yes (Hospitalization, Other)
  Sender: FDA-Public Use
  Company Number: 2023A024169

PATIENT
  Age: 20727 Day
  Sex: Female
  Weight: 75.3 kg

DRUGS (1)
  1. FASENRA [Suspect]
     Active Substance: BENRALIZUMAB
     Indication: Asthma
     Dosage: DOSE AS USED - 30 MG/ML30MG/ML EVERY FOUR WEEKS
     Route: 058
     Dates: start: 20210810, end: 20230106

REACTIONS (7)
  - Bronchitis [Recovered/Resolved]
  - SARS-CoV-2 test positive [Recovered/Resolved]
  - Cough [Recovered/Resolved]
  - Pyrexia [Recovered/Resolved]
  - Chills [Recovered/Resolved]
  - Arthralgia [Recovered/Resolved]
  - Off label use [Unknown]

NARRATIVE: CASE EVENT DATE: 20221230
